FAERS Safety Report 9580400 (Version 1)
Quarter: 2013Q3

REPORT INFORMATION
  Report Type: Spontaneous
  Country: GB (occurrence: None)
  Receive Date: 20130930
  Receipt Date: 20130930
  Transmission Date: 20140515
  Serious: Yes (Other)
  Sender: FDA-Public Use
  Company Number: GER/UKI/13/0034707

PATIENT
  Age: 58 Year
  Sex: Female
  Weight: 74 kg

DRUGS (6)
  1. SERTRALINE [Suspect]
     Indication: DEPRESSION
     Dates: start: 20101116, end: 201306
  2. FOLIC ACID (FOLIC ACID) [Concomitant]
  3. PREGABALIN (PREGABALIN) [Concomitant]
  4. SERETIDE (SERETIDE) [Concomitant]
  5. TIOTROPIUM (TIOPROPIUM) [Concomitant]
  6. VENTOLIN (SALBUTAMOL) [Concomitant]

REACTIONS (2)
  - Hepatic steatosis [None]
  - Antinuclear antibody positive [None]
